FAERS Safety Report 8819737 (Version 3)
Quarter: 2013Q3

REPORT INFORMATION
  Report Type: Spontaneous
  Country: US (occurrence: US)
  Receive Date: 20121001
  Receipt Date: 20130823
  Transmission Date: 20140515
  Serious: Yes (Hospitalization, Other)
  Sender: FDA-Public Use
  Company Number: US-ASTRAZENECA-2012SE72403

PATIENT
  Age: 73 Year
  Sex: Female
  Weight: 102.1 kg

DRUGS (20)
  1. NEXIUM [Suspect]
     Indication: GASTROOESOPHAGEAL REFLUX DISEASE
     Route: 048
     Dates: start: 2010, end: 20130809
  2. LISINOPRIL [Suspect]
     Indication: BLOOD PRESSURE ABNORMAL
     Route: 048
     Dates: start: 2007
  3. LISINOPRIL [Suspect]
     Indication: CARDIAC DISORDER
     Route: 048
     Dates: start: 2007
  4. GABAPENTIN [Concomitant]
     Indication: NEUROPATHY PERIPHERAL
     Route: 048
     Dates: start: 201106
  5. GABAPENTIN [Concomitant]
     Indication: NEUROPATHY PERIPHERAL
     Route: 048
     Dates: start: 2010
  6. COREG [Concomitant]
     Indication: HYPERTENSION
     Route: 048
     Dates: start: 201109
  7. COREG [Concomitant]
     Indication: CARDIAC DISORDER
     Route: 048
     Dates: start: 201109
  8. COREG [Concomitant]
     Indication: HYPERTENSION
     Route: 048
     Dates: start: 2008
  9. COREG [Concomitant]
     Indication: CARDIAC DISORDER
     Route: 048
     Dates: start: 2008
  10. ASPIRIN [Concomitant]
     Route: 048
     Dates: start: 201207
  11. LEVOTHYROXINE [Concomitant]
     Indication: THYROID DISORDER
     Route: 048
     Dates: start: 2010
  12. ALTACE [Concomitant]
     Indication: HYPERTENSION
     Route: 048
     Dates: start: 201207
  13. METFORMIN [Concomitant]
     Indication: DIABETES MELLITUS
     Route: 048
     Dates: start: 201106
  14. METFORMIN [Concomitant]
     Indication: DIABETES MELLITUS
     Route: 048
     Dates: start: 2010
  15. PRAVASTATIN [Concomitant]
     Indication: BLOOD CHOLESTEROL INCREASED
     Route: 048
     Dates: start: 2008
  16. PRAVASTATIN [Concomitant]
     Indication: BLOOD CHOLESTEROL INCREASED
     Route: 048
     Dates: start: 2006
  17. ALLOPURINOL [Concomitant]
     Indication: GOUT
     Route: 048
     Dates: start: 201209
  18. GLUCOSAMINE [Concomitant]
     Indication: GOUT
     Route: 048
     Dates: start: 201209
  19. IBUPROFEN [Concomitant]
     Indication: ARTHRITIS
     Route: 048
     Dates: start: 2012
  20. OTC ALLERGY MEDICATION [Concomitant]
     Indication: SEASONAL ALLERGY
     Dosage: PRN
     Route: 048

REACTIONS (13)
  - Device malfunction [Unknown]
  - Neuropathy peripheral [Not Recovered/Not Resolved]
  - Heart rate irregular [Unknown]
  - Gout [Unknown]
  - Gout [Unknown]
  - Diabetes mellitus [Unknown]
  - Eructation [Not Recovered/Not Resolved]
  - Rhinorrhoea [Not Recovered/Not Resolved]
  - Thyroid disorder [Unknown]
  - Gait disturbance [Unknown]
  - Feeling abnormal [Not Recovered/Not Resolved]
  - Dyspepsia [Not Recovered/Not Resolved]
  - Drug dose omission [Not Recovered/Not Resolved]
